FAERS Safety Report 26085948 (Version 1)
Quarter: 2025Q4

REPORT INFORMATION
  Report Type: Spontaneous
  Country: US (occurrence: US)
  Receive Date: 20251125
  Receipt Date: 20251125
  Transmission Date: 20260118
  Serious: Yes (Hospitalization)
  Sender: Alora Pharma
  Company Number: US-ACELLA PHARMACEUTICALS, LLC-2025ALO02617

PATIENT
  Sex: Female
  Weight: 97.522 kg

DRUGS (6)
  1. NP THYROID [Suspect]
     Active Substance: LEVOTHYROXINE\LIOTHYRONINE
     Indication: Hypothyroidism
     Dosage: STARTED ON ^60 MG OR 90 MG^ [START DATE ^AROUND 2010^]
     Route: 048
     Dates: start: 2010, end: 2023
  2. NP THYROID [Suspect]
     Active Substance: LEVOTHYROXINE\LIOTHYRONINE
     Indication: Hypothyroidism
     Dosage: 120 MG, 1X/DAY [FILL DATE 25-AUG-2025]
     Route: 048
     Dates: start: 2022
  3. NP THYROID [Suspect]
     Active Substance: LEVOTHYROXINE\LIOTHYRONINE
     Dosage: 120 MG, 1X/DAY [FILL DATE: 23-JUL-2025]
     Route: 048
     Dates: start: 2022
  4. NP THYROID [Suspect]
     Active Substance: LEVOTHYROXINE\LIOTHYRONINE
     Dosage: 120 MG, 1X/DAY  [FILL DATE: 18-SEP-2025]
     Route: 048
     Dates: start: 2025, end: 2025
  5. NP THYROID [Suspect]
     Active Substance: LEVOTHYROXINE\LIOTHYRONINE
     Dosage: 120 MG, 1X/DAY [FILL DATE: 11-NOV-2025]
     Route: 048
     Dates: start: 202511
  6. UNSPECIFIED INGREDIENT [Concomitant]
     Active Substance: UNSPECIFIED INGREDIENT
     Dosage: SHOTS IN MY EYES EVERY 4 MONTHS

REACTIONS (2)
  - Hypertension [Recovered/Resolved]
  - Therapeutic product effect incomplete [Recovered/Resolved]
